FAERS Safety Report 10847855 (Version 1)
Quarter: 2015Q1

REPORT INFORMATION
  Report Type: Report from Study
  Country: US (occurrence: US)
  Receive Date: 20150220
  Receipt Date: 20150220
  Transmission Date: 20150721
  Serious: Yes (Death)
  Sender: FDA-Public Use
  Company Number: US-INTERMUNE, INC.-201502IM009843

PATIENT
  Age: 72 Year
  Sex: Male

DRUGS (17)
  1. CRESTOR [Concomitant]
     Active Substance: ROSUVASTATIN CALCIUM
  2. LORAZEPAM. [Concomitant]
     Active Substance: LORAZEPAM
  3. LUMIGAN [Concomitant]
     Active Substance: BIMATOPROST
  4. ENOXAPARIN [Concomitant]
     Active Substance: ENOXAPARIN
  5. DORZOLAMIDE [Concomitant]
     Active Substance: DORZOLAMIDE
  6. ESBRIET [Suspect]
     Active Substance: PIRFENIDONE
     Route: 048
  7. PROAIR HFA [Concomitant]
     Active Substance: ALBUTEROL SULFATE
  8. SPIRIVA [Concomitant]
     Active Substance: TIOTROPIUM BROMIDE MONOHYDRATE
  9. IMDUR [Concomitant]
     Active Substance: ISOSORBIDE MONONITRATE
  10. PREDNISONE. [Concomitant]
     Active Substance: PREDNISONE
  11. FOLIC ACID. [Concomitant]
     Active Substance: FOLIC ACID
  12. NIACIN. [Concomitant]
     Active Substance: NIACIN
  13. ESCITALOPRAM [Concomitant]
     Active Substance: ESCITALOPRAM OXALATE
  14. PRESERVISION [Concomitant]
  15. MULTIVITAMIN [Concomitant]
     Active Substance: VITAMINS
  16. MUCINEX [Concomitant]
     Active Substance: GUAIFENESIN
  17. VITAMIN D [Concomitant]
     Active Substance: CHOLECALCIFEROL

REACTIONS (1)
  - Death [Fatal]

NARRATIVE: CASE EVENT DATE: 20150122
